FAERS Safety Report 10393431 (Version 1)
Quarter: 2014Q3

REPORT INFORMATION
  Report Type: Spontaneous
  Country: US (occurrence: US)
  Receive Date: 20140819
  Receipt Date: 20140819
  Transmission Date: 20150326
  Serious: Yes (Hospitalization, Other)
  Sender: FDA-Public Use
  Company Number: US-TEVA-502205USA

PATIENT
  Sex: Female

DRUGS (7)
  1. POTASSIUM SALT [Concomitant]
  2. PROAIR HFA [Suspect]
     Active Substance: ALBUTEROL SULFATE
     Indication: CHRONIC OBSTRUCTIVE PULMONARY DISEASE
     Dosage: 2 PUFFS AS REQUIRED
     Route: 055
  3. AMLODIPINE [Concomitant]
     Active Substance: AMLODIPINE BESYLATE
  4. VENTOLIN [Suspect]
     Active Substance: ALBUTEROL SULFATE
     Indication: CHRONIC OBSTRUCTIVE PULMONARY DISEASE
     Dosage: 2 PUFFS AS REQUIRED
     Route: 055
  5. ALPRAZOLAM. [Concomitant]
     Active Substance: ALPRAZOLAM
  6. NISOLDIPINE. [Concomitant]
     Active Substance: NISOLDIPINE
  7. OXYGEN. [Concomitant]
     Active Substance: OXYGEN

REACTIONS (9)
  - Renal cancer [Recovering/Resolving]
  - Benign renal neoplasm [Recovering/Resolving]
  - Asthenia [Recovering/Resolving]
  - Drug effect decreased [Unknown]
  - Renal disorder [Recovering/Resolving]
  - Colon cancer [Unknown]
  - Hypersensitivity [Unknown]
  - Investigation [Unknown]
  - Colon cancer stage III [Unknown]

NARRATIVE: CASE EVENT DATE: 2010
